FAERS Safety Report 11389734 (Version 1)
Quarter: 2015Q3

REPORT INFORMATION
  Report Type: Spontaneous
  Country: US (occurrence: US)
  Receive Date: 20150817
  Receipt Date: 20150817
  Transmission Date: 20151125
  Serious: No
  Sender: FDA-Public Use
  Company Number: ALCN2015US004606

PATIENT
  Age: 85 Year
  Sex: Female

DRUGS (2)
  1. REFRESH CLASSIC LUCRICANT EYE DROPS [Concomitant]
     Indication: DRY EYE
     Dosage: 1 DF, UNK
     Route: 047
  2. SYSTANE ULTRA [Suspect]
     Active Substance: POLYETHYLENE GLYCOL 400\PROPYLENE GLYCOL
     Indication: DRY EYE
     Dosage: 1 GTT, BID
     Route: 047
     Dates: start: 20150714

REACTIONS (1)
  - Eye pruritus [Not Recovered/Not Resolved]

NARRATIVE: CASE EVENT DATE: 20150715
